FAERS Safety Report 10201641 (Version 1)
Quarter: 2014Q2

REPORT INFORMATION
  Report Type: Report from Study
  Country: US (occurrence: US)
  Receive Date: 20140528
  Receipt Date: 20140528
  Transmission Date: 20141212
  Serious: Yes (Other)
  Sender: FDA-Public Use
  Company Number: US-ABBVIE-14P-163-1239580-00

PATIENT
  Sex: Male

DRUGS (1)
  1. HUMIRA [Suspect]
     Indication: CROHN^S DISEASE
     Dates: start: 20140120

REACTIONS (11)
  - Blood disorder [Not Recovered/Not Resolved]
  - Feeling abnormal [Unknown]
  - Unevaluable event [Unknown]
  - Hypophagia [Unknown]
  - Unevaluable event [Unknown]
  - Vomiting [Unknown]
  - Mental disorder [Unknown]
  - Fall [Unknown]
  - Nervousness [Unknown]
  - Injection site haemorrhage [Unknown]
  - Stress [Unknown]
